FAERS Safety Report 6895210-8 (Version None)
Quarter: 2010Q3

REPORT INFORMATION
  Report Type: 
  Country: None (occurrence: None)
  Receive Date: 20100802
  Receipt Date: 20100722
  Transmission Date: 20110219
  Serious: Yes (Death, Life-Threatening, Hospitalization, Disabling, Other)
  Sender: FDA-Public Use
  Company Number: PHHY2010US45126

PATIENT
  Age: 68 Year
  Sex: Female
  Weight: 85.714 kg

DRUGS (35)
  1. ZOLEDRONIC ACID [Suspect]
     Dosage: 4 MG, QMO
     Route: 042
     Dates: start: 20100421, end: 20100421
  2. REVLIMID [Suspect]
     Indication: MULTIPLE MYELOMA
     Dosage: 25 MG (DAILY 1-21 Q28D)
     Route: 048
     Dates: start: 20100428, end: 20100518
  3. VICODIN [Concomitant]
     Dosage: UNK
  4. DEXAMETHASONE [Concomitant]
     Dosage: 40 MG, QW
     Dates: end: 20100517
  5. MULTI-VITAMINS [Concomitant]
  6. REZAMID [Concomitant]
     Dosage: 200 MG (DAY 1-21)
  7. CALCIUM [Concomitant]
  8. VITAMIN D [Concomitant]
  9. NOVOLOG [Concomitant]
     Dosage: 5 UNITS
  10. NOVOLOG [Concomitant]
     Dosage: 32 UNITS
     Route: 058
     Dates: start: 20100526
  11. NOVOLOG [Concomitant]
     Dosage: 40 UNITS
     Route: 058
     Dates: start: 20100526
  12. NOVOLOG [Concomitant]
     Dosage: 10 UNITS
     Route: 058
     Dates: start: 20100526
  13. ENEMA [Concomitant]
     Indication: CONSTIPATION
     Dosage: UNK
     Dates: start: 20100602
  14. VITAMIN K TAB [Concomitant]
     Dosage: 10 MG, UNK
     Route: 048
     Dates: start: 20100523
  15. PERI-COLACE [Concomitant]
     Indication: CONSTIPATION
     Dosage: UNK
     Dates: start: 20100523
  16. PREDNISOLON [Concomitant]
     Dosage: 60 MG
     Route: 048
     Dates: start: 20100524, end: 20100528
  17. PREDNISOLON [Concomitant]
     Dosage: 30
     Route: 048
     Dates: start: 20100525
  18. MIDAZOLAM HCL [Concomitant]
     Dosage: UNK
     Dates: start: 20100528
  19. FENTANYL [Concomitant]
     Dosage: 12.5- 50 MC
  20. MIRALAX [Concomitant]
     Dosage: UNK
     Dates: start: 20100528
  21. SENOKOT [Concomitant]
     Dosage: 8.6-50 MG
  22. VANCOMYCIN [Concomitant]
  23. CIPRO [Concomitant]
  24. ZOSYN [Concomitant]
  25. DILTIAZEM [Concomitant]
  26. REGLAN [Concomitant]
     Dosage: 10 MG
     Route: 048
     Dates: start: 20100524
  27. SODIUM CHLORIDE [Concomitant]
     Dosage: 0.9 %
     Route: 042
  28. GLUCAGON [Concomitant]
     Dosage: 1 MG
  29. LACTULOSE [Concomitant]
     Dosage: 200 GM
     Route: 054
  30. LIDOCAINE [Concomitant]
     Dosage: 100MG/ ML
  31. NOREPINEPHRINE [Concomitant]
     Dosage: 5MG IN DEXTROSE 5% 250 ML
     Route: 042
  32. PANTOPRAZOLE [Concomitant]
     Dosage: 40 MG
  33. PHYTONADIONE [Concomitant]
     Dosage: 10 MG
  34. PIPERACILLIN [Concomitant]
     Dosage: 3.375 GM
  35. RIFAXIMIN [Concomitant]
     Dosage: 400 MG

REACTIONS (35)
  - ABDOMINAL DISTENSION [None]
  - ABDOMINAL TENDERNESS [None]
  - ACUTE HEPATIC FAILURE [None]
  - ANAEMIA [None]
  - ASTERIXIS [None]
  - ATRIAL FIBRILLATION [None]
  - AUTOIMMUNE HEPATITIS [None]
  - BLOOD GLUCOSE INCREASED [None]
  - CATHETER SITE INFECTION [None]
  - CHOLELITHIASIS [None]
  - COAGULOPATHY [None]
  - CONSTIPATION [None]
  - DEPRESSED LEVEL OF CONSCIOUSNESS [None]
  - DIVERTICULITIS [None]
  - ESCHERICHIA URINARY TRACT INFECTION [None]
  - HAEMATOCHEZIA [None]
  - HAEMORRHOIDS [None]
  - HEPATIC CALCIFICATION [None]
  - HEPATIC ENCEPHALOPATHY [None]
  - HEPATOTOXICITY [None]
  - HYPERGLYCAEMIA [None]
  - HYPOKALAEMIA [None]
  - JAUNDICE [None]
  - LOCALISED OEDEMA [None]
  - LOWER GASTROINTESTINAL HAEMORRHAGE [None]
  - MULTI-ORGAN FAILURE [None]
  - OCULAR ICTERUS [None]
  - PLATELET COUNT DECREASED [None]
  - PRESYNCOPE [None]
  - PULMONARY OEDEMA [None]
  - RECTAL ULCER HAEMORRHAGE [None]
  - RENAL FAILURE ACUTE [None]
  - STAPHYLOCOCCAL SEPSIS [None]
  - SYNCOPE [None]
  - VASCULAR CAUTERISATION [None]
